FAERS Safety Report 9771172 (Version 2)
Quarter: 2014Q1

REPORT INFORMATION
  Report Type: Spontaneous
  Country: US (occurrence: US)
  Receive Date: 20131218
  Receipt Date: 20140114
  Transmission Date: 20141002
  Serious: Yes (Hospitalization)
  Sender: FDA-Public Use
  Company Number: US-B.I. PHARMACEUTICALS,INC./RIDGEFIELD-2013-BI-42073BP

PATIENT
  Age: 69 Year
  Sex: Male

DRUGS (10)
  1. PRADAXA [Suspect]
     Indication: ATRIAL FIBRILLATION
     Dosage: 300 MG
     Route: 048
     Dates: start: 201311, end: 20131209
  2. LIPITOR [Concomitant]
     Route: 065
  3. CIPRO [Concomitant]
     Route: 065
  4. CLONIDINE [Concomitant]
     Route: 065
  5. METOPROLOL [Concomitant]
     Route: 065
  6. GABAPENTIN [Concomitant]
     Route: 065
  7. PROPAFENONE [Concomitant]
     Route: 065
  8. FLOMAX [Concomitant]
     Route: 065
  9. PENTOXIFYLLINE [Concomitant]
     Route: 065
  10. PROTONIX [Concomitant]
     Route: 065

REACTIONS (1)
  - Gastrointestinal haemorrhage [Recovered/Resolved]
